FAERS Safety Report 4524427-2 (Version None)
Quarter: 2004Q4

REPORT INFORMATION
  Report Type: 
  Country: None (occurrence: None)
  Receive Date: 20041116
  Receipt Date: 20040825
  Transmission Date: 20050328
  Serious: Yes (Other)
  Sender: FDA-Public Use
  Company Number: PHEH2004US09282

PATIENT
  Age: 69 Year
  Sex: Female
  Weight: 130 kg

DRUGS (2)
  1. GLEEVEC [Suspect]
     Indication: CHRONIC MYELOID LEUKAEMIA
     Dosage: SEE IMAGE, ORAL
     Route: 048
     Dates: start: 20040725, end: 20040816
  2. SYNTHROID [Concomitant]

REACTIONS (4)
  - PANCYTOPENIA [None]
  - PRURITUS [None]
  - RASH [None]
  - URTICARIA [None]
